FAERS Safety Report 9165254 (Version 1)
Quarter: 2013Q1

REPORT INFORMATION
  Report Type: Spontaneous
  Country: FR (occurrence: FR)
  Receive Date: 20130315
  Receipt Date: 20130315
  Transmission Date: 20140127
  Serious: Yes (Life-Threatening, Hospitalization)
  Sender: FDA-Public Use
  Company Number: FR-TEVA-390751ISR

PATIENT
  Age: 89 Year
  Sex: Female

DRUGS (6)
  1. METFORMIN [Suspect]
     Indication: TYPE 2 DIABETES MELLITUS
     Dosage: 3 GRAM DAILY;
     Route: 048
     Dates: end: 20101111
  2. LASILIX [Suspect]
     Indication: CARDIAC FAILURE
     Dosage: 1 DOSAGE FORMS DAILY;
     Route: 048
     Dates: start: 20100515
  3. TRIATEC [Suspect]
     Indication: CARDIAC FAILURE
     Dosage: 2.5 MILLIGRAM DAILY;
     Route: 048
     Dates: start: 20100515
  4. AMAREL 4 MG, COMPRIME [Concomitant]
     Dosage: 4 MILLIGRAM DAILY;
     Route: 048
  5. CARDENSIEL 3,75 MG, COMPRIME PELLICULE SECABLE [Concomitant]
     Dosage: 3.75 MILLIGRAM DAILY;
     Route: 048
  6. PREVISCAN 20 MG, COMPRIME QUADRISECABLE [Concomitant]
     Route: 048

REACTIONS (2)
  - Lactic acidosis [Recovered/Resolved with Sequelae]
  - Renal failure [Recovered/Resolved with Sequelae]
